FAERS Safety Report 23105526 (Version 1)
Quarter: 2023Q4

REPORT INFORMATION
  Report Type: Spontaneous
  Country: CZ (occurrence: CZ)
  Receive Date: 20231025
  Receipt Date: 20231025
  Transmission Date: 20240110
  Serious: Yes (Other)
  Sender: FDA-Public Use
  Company Number: CZ-PHARMAGEN-PHARMAGEN20230926a_Lit

PATIENT
  Sex: Male

DRUGS (4)
  1. IRINOTECAN [Suspect]
     Active Substance: IRINOTECAN
     Indication: Chemotherapy
     Dosage: UNK (6 CYCLES)
     Route: 065
     Dates: start: 202101, end: 202104
  2. OXALIPLATIN [Suspect]
     Active Substance: OXALIPLATIN
     Indication: Chemotherapy
     Dosage: UNK (6 CYCLES)
     Route: 065
     Dates: start: 202101, end: 202104
  3. LEUCOVORIN [Suspect]
     Active Substance: LEUCOVORIN\LEUCOVORIN CALCIUM
     Indication: Chemotherapy
     Dosage: UNK, (6 CYCLES)
     Route: 065
     Dates: start: 202101, end: 202104
  4. FLUOROURACIL [Suspect]
     Active Substance: FLUOROURACIL
     Indication: Chemotherapy
     Dosage: UNK,6 CYCLES
     Route: 065
     Dates: start: 202101, end: 202104

REACTIONS (3)
  - Brachiocephalic vein thrombosis [Unknown]
  - Vena cava thrombosis [Unknown]
  - Pulmonary embolism [Unknown]
